FAERS Safety Report 8762561 (Version 1)
Quarter: 2012Q4

REPORT INFORMATION
  Report Type: Report from Study
  Country: AU (occurrence: AU)
  Receive Date: 20120830
  Receipt Date: 20120830
  Transmission Date: 20130627
  Serious: Yes (Other)
  Sender: FDA-Public Use
  Company Number: AU-ROCHE-1110231

PATIENT
  Age: 61 Year
  Sex: Female

DRUGS (8)
  1. ROACTEMRA [Suspect]
     Indication: RHEUMATOID ARTHRITIS
     Route: 042
  2. SINEQUAN [Concomitant]
     Indication: MUSCLE RELAXANT THERAPY
     Dosage: at night
     Route: 048
  3. LIPITOR [Concomitant]
     Indication: BLOOD CHOLESTEROL
     Dosage: at night
     Route: 048
  4. ENDONE [Concomitant]
     Dosage: at night
     Route: 048
  5. CELEBREX [Concomitant]
     Indication: ARTHRITIS
  6. NEXIUM [Concomitant]
  7. FOLIC ACID [Concomitant]
  8. PANADEINE FORTE [Concomitant]

REACTIONS (1)
  - Influenza like illness [Recovering/Resolving]
